FAERS Safety Report 15027074 (Version 2)
Quarter: 2018Q3

REPORT INFORMATION
  Report Type: Spontaneous
  Country: GB (occurrence: GB)
  Receive Date: 20180619
  Receipt Date: 20180704
  Transmission Date: 20181010
  Serious: Yes (Death, Life-Threatening, Hospitalization, Disabling, Other)
  Sender: FDA-Public Use
  Company Number: GB-009507513-1806GBR005803

PATIENT
  Age: 57 Year
  Sex: Male
  Weight: 65 kg

DRUGS (3)
  1. ACETAMINOPHEN. [Suspect]
     Active Substance: ACETAMINOPHEN
  2. ZOLEDRONIC ACID [Concomitant]
     Active Substance: ZOLEDRONIC ACID
     Indication: CANCER PAIN
     Dosage: 4 MG, Q3W
     Route: 042
     Dates: start: 20180413
  3. PEMBROLIZUMAB. [Suspect]
     Active Substance: PEMBROLIZUMAB
     Indication: THYMOMA MALIGNANT
     Dosage: 200 MG FLAT DOSE; FREQUENCY 3 WEEKLY
     Route: 065
     Dates: start: 20180413

REACTIONS (4)
  - Spinal compression fracture [Recovered/Resolved with Sequelae]
  - Spinal operation [Not Recovered/Not Resolved]
  - Malignant neoplasm progression [Fatal]
  - Spinal cord compression [Recovered/Resolved with Sequelae]

NARRATIVE: CASE EVENT DATE: 20180418
